FAERS Safety Report 12250883 (Version 2)
Quarter: 2016Q2

REPORT INFORMATION
  Report Type: Spontaneous
  Country: US (occurrence: US)
  Receive Date: 20160409
  Receipt Date: 20160601
  Transmission Date: 20160815
  Serious: No
  Sender: FDA-Public Use
  Company Number: US-009507513-1604USA003197

PATIENT
  Sex: Male

DRUGS (1)
  1. PROVENTIL [Suspect]
     Active Substance: ALBUTEROL
     Dosage: UNK

REACTIONS (4)
  - Product container issue [Unknown]
  - Device malfunction [None]
  - Drug dose omission [Unknown]
  - No adverse event [Unknown]
